FAERS Safety Report 8584548-4 (Version None)
Quarter: 2012Q3

REPORT INFORMATION
  Report Type: 
  Country: None (occurrence: None)
  Receive Date: 20120730
  Receipt Date: 20120716
  Transmission Date: 20120928
  Serious: Yes (Hospitalization, Other)
  Sender: FDA-Public Use
  Company Number: 2012P1049745

PATIENT
  Age: 41 Year
  Sex: Female

DRUGS (3)
  1. FENTANYL CITRATE [Suspect]
     Indication: SEDATION
     Dosage: 100 UG;QH;
  2. FENTANYL CITRATE [Suspect]
     Indication: ANALGESIC THERAPY
     Dosage: 100 UG;QH;
  3. 3,4-METHYLENEDIOXYPYROVALERONE (MDPV) (NO PREF. NAME) [Suspect]

REACTIONS (10)
  - PNEUMONIA ASPIRATION [None]
  - SEROTONIN SYNDROME [None]
  - HYPERTONIA [None]
  - AGGRESSION [None]
  - BACTERAEMIA [None]
  - HYPERREFLEXIA [None]
  - CLONUS [None]
  - PNEUMOTHORAX [None]
  - AGITATION [None]
  - CONDITION AGGRAVATED [None]
